FAERS Safety Report 6020862-4 (Version None)
Quarter: 2008Q4

REPORT INFORMATION
  Report Type: 
  Country: None (occurrence: None)
  Receive Date: 20081229
  Receipt Date: 20081218
  Transmission Date: 20090506
  Serious: Yes (Other)
  Sender: FDA-Public Use
  Company Number: US-BAYER-200824418NA

PATIENT
  Age: 71 Year
  Sex: Female

DRUGS (2)
  1. NEXAVAR [Suspect]
     Indication: RENAL CELL CARCINOMA
     Dosage: TOTAL DAILY DOSE: 800 MG  UNIT DOSE: 200 MG
     Route: 048
     Dates: start: 20080515, end: 20081201
  2. NEXAVAR [Suspect]
     Dosage: AS USED: 400/200 MG  UNIT DOSE: 200 MG
     Route: 048
     Dates: start: 20081201

REACTIONS (9)
  - ALOPECIA [None]
  - CHILLS [None]
  - DIARRHOEA [None]
  - FLATULENCE [None]
  - HOT FLUSH [None]
  - RASH [None]
  - RASH MACULAR [None]
  - SKIN LESION [None]
  - SQUAMOUS CELL CARCINOMA [None]
